FAERS Safety Report 11099786 (Version 1)
Quarter: 2015Q2

REPORT INFORMATION
  Report Type: Spontaneous
  Country: GR (occurrence: None)
  Receive Date: 20150506
  Receipt Date: 20150506
  Transmission Date: 20150821
  Serious: Yes (Life-Threatening, Hospitalization)
  Sender: FDA-Public Use
  Company Number: NSR_02061_2015

PATIENT
  Age: 74 Year
  Sex: Male

DRUGS (2)
  1. FENTANYL (FENTANYL) [Suspect]
     Active Substance: FENTANYL
     Indication: NEURALGIA
     Dosage: (75 UG 1X/72 HOURS TRANSDERMAL)?
     Route: 062
  2. TRAMADOL (TRAMADOL) 50 MG [Suspect]
     Active Substance: TRAMADOL
     Indication: BREAKTHROUGH PAIN
     Dosage: (50 MG, TWICE TO THRICE DAILY)?

REACTIONS (6)
  - Respiratory depression [None]
  - Depressed level of consciousness [None]
  - Respiratory acidosis [None]
  - Heart rate increased [None]
  - Hypercapnia [None]
  - Toxicity to various agents [None]
